FAERS Safety Report 9161516 (Version 2)
Quarter: 2013Q2

REPORT INFORMATION
  Report Type: Spontaneous
  Country: US (occurrence: US)
  Receive Date: 20130313
  Receipt Date: 20130509
  Transmission Date: 20140414
  Serious: No
  Sender: FDA-Public Use
  Company Number: US-009507513-1302USA011999

PATIENT
  Age: 47 Year
  Sex: Female

DRUGS (2)
  1. PEGINTRON [Suspect]
     Indication: HEPATITIS C
     Dosage: REDIPEN
     Route: 058
     Dates: start: 20130220
  2. REBETOL [Suspect]
     Indication: HEPATITIS C
     Dosage: UNK
     Route: 048
     Dates: start: 20130220

REACTIONS (14)
  - Dry eye [Unknown]
  - Headache [Unknown]
  - Injection site reaction [Unknown]
  - Rash [Unknown]
  - Decreased appetite [Unknown]
  - Insomnia [Unknown]
  - Dry mouth [Unknown]
  - Insomnia [Unknown]
  - Nausea [Unknown]
  - Vomiting [Unknown]
  - Decreased appetite [Unknown]
  - Dry mouth [Unknown]
  - Dry skin [Unknown]
  - Dizziness [Unknown]
